FAERS Safety Report 13274250 (Version 2)
Quarter: 2019Q3

REPORT INFORMATION
  Report Type: Spontaneous
  Country: GR (occurrence: US)
  Receive Date: 20170227
  Receipt Date: 20190916
  Transmission Date: 20191004
  Serious: Yes (Death, Other)
  Sender: FDA-Public Use
  Company Number: US-CELGENEUS-USA-2015055266

PATIENT

DRUGS (4)
  1. ELOTUZUMAB. [Suspect]
     Active Substance: ELOTUZUMAB
     Indication: PLASMA CELL MYELOMA RECURRENT
     Dosage: WEEKLY 1+2, THEN BI-WEEKLY
     Route: 041
  2. DEXAMETHASONE. [Suspect]
     Active Substance: DEXAMETHASONE
     Indication: PLASMA CELL MYELOMA RECURRENT
     Dosage: 40 MILLIGRAM
     Route: 048
  3. DEXAMETHASONE. [Suspect]
     Active Substance: DEXAMETHASONE
     Route: 041
  4. REVLIMID [Suspect]
     Active Substance: LENALIDOMIDE
     Indication: PLASMA CELL MYELOMA RECURRENT
     Dosage: 25 MILLIGRAM
     Route: 048

REACTIONS (32)
  - Diarrhoea [Unknown]
  - Oedema peripheral [Unknown]
  - Lymphopenia [Unknown]
  - Back pain [Unknown]
  - Cataract [Unknown]
  - Gastrointestinal disorder [Unknown]
  - Hypertension [Unknown]
  - Pulmonary embolism [Fatal]
  - Insomnia [Unknown]
  - Myelodysplastic syndrome [Fatal]
  - Infusion related reaction [Unknown]
  - Plasma cell myeloma [Unknown]
  - Cough [Unknown]
  - Respiratory disorder [Unknown]
  - Deep vein thrombosis [Unknown]
  - Hyperglycaemia [Unknown]
  - Renal disorder [Unknown]
  - Neuropathy peripheral [Unknown]
  - Neutropenia [Unknown]
  - Fatigue [Unknown]
  - Muscle spasms [Unknown]
  - Nasopharyngitis [Unknown]
  - Gastrointestinal carcinoma [Fatal]
  - Infection [Fatal]
  - Anaemia [Unknown]
  - Pyrexia [Unknown]
  - Constipation [Unknown]
  - Thrombocytopenia [Unknown]
  - Pneumonia [Recovered/Resolved]
  - Decreased appetite [Unknown]
  - Second primary malignancy [Unknown]
  - Cardiac failure [Unknown]
